FAERS Safety Report 8670135 (Version 5)
Quarter: 2017Q1

REPORT INFORMATION
  Report Type: Report from Study
  Country: SE (occurrence: SE)
  Receive Date: 20120718
  Receipt Date: 20170322
  Transmission Date: 20170429
  Serious: Yes (Death)
  Sender: FDA-Public Use
  Company Number: SE-ROCHE-1088822

PATIENT
  Age: 76 Year
  Sex: Female
  Weight: 94 kg

DRUGS (14)
  1. RESONIUM [Concomitant]
     Active Substance: SODIUM POLYSTYRENE SULFONATE
     Route: 048
  2. SODIUM BICARBONATE. [Concomitant]
     Active Substance: SODIUM BICARBONATE
     Route: 048
     Dates: end: 201112
  3. PARACETAMOL [Concomitant]
     Active Substance: ACETAMINOPHEN
     Route: 048
  4. CALCICHEW D3 FORTE [Concomitant]
     Active Substance: CALCIUM\CHOLECALCIFEROL
  5. PREDNISOLON [Concomitant]
     Active Substance: PREDNISOLONE
     Route: 048
  6. ARANESP [Concomitant]
     Active Substance: DARBEPOETIN ALFA
     Route: 058
  7. FURIX [Concomitant]
     Active Substance: FUROSEMIDE
     Route: 048
  8. DIMOR [Concomitant]
     Active Substance: LOPERAMIDE
     Route: 048
  9. INOLAXOL [Concomitant]
  10. PANODIL [Concomitant]
     Active Substance: ACETAMINOPHEN
  11. TRAMADOL. [Concomitant]
     Active Substance: TRAMADOL
     Route: 048
  12. TOCILIZUMAB [Suspect]
     Active Substance: TOCILIZUMAB
     Indication: RHEUMATOID ARTHRITIS
     Dosage: LAST DOSE PRIOR TO SAE: 06 JUNE 2012. 20 MG/ML
     Route: 042
     Dates: start: 20120229
  13. LOSARTAN. [Concomitant]
     Active Substance: LOSARTAN
  14. WARFARIN [Concomitant]
     Active Substance: WARFARIN
     Route: 048

REACTIONS (1)
  - Cardiac arrest [Fatal]

NARRATIVE: CASE EVENT DATE: 20120715
